FAERS Safety Report 6057958-7 (Version None)
Quarter: 2009Q1

REPORT INFORMATION
  Report Type: 
  Country: None (occurrence: None)
  Receive Date: 20090129
  Receipt Date: 20090129
  Transmission Date: 20090719
  Serious: Yes (Life-Threatening, Other)
  Sender: FDA-Public Use
  Company Number: JP-B.I. PHARMACEUTICALS,INC./RIDGEFIELD-2009-BP-00469NB

PATIENT
  Sex: Female
  Weight: 53 kg

DRUGS (2)
  1. MICARDIS [Suspect]
     Indication: HYPERTENSION
     Dosage: 20MG
     Route: 048
     Dates: start: 20060911, end: 20080526
  2. NOVORAPID MIX [Concomitant]
     Dosage: 6U
     Route: 058
     Dates: start: 20060124, end: 20080526

REACTIONS (2)
  - CONDITION AGGRAVATED [None]
  - LARGE INTESTINE CARCINOMA [None]
